FAERS Safety Report 5090680-2 (Version None)
Quarter: 2006Q3

REPORT INFORMATION
  Report Type: 
  Country: None (occurrence: None)
  Receive Date: 20060823
  Receipt Date: 20060814
  Transmission Date: 20061208
  Serious: Yes (Life-Threatening, Hospitalization, Other)
  Sender: FDA-Public Use
  Company Number: 2006-08-0079

PATIENT
  Age: 14 Year
  Sex: Male

DRUGS (1)
  1. TEMODAL [Suspect]
     Indication: GLIOMA
     Dosage: 200 MG/M^2X5D ORAL
     Route: 048
     Dates: start: 20020701, end: 20030301

REACTIONS (1)
  - ACUTE LYMPHOCYTIC LEUKAEMIA [None]
